FAERS Safety Report 19409996 (Version 1)
Quarter: 2021Q2

REPORT INFORMATION
  Report Type: Spontaneous
  Country: US (occurrence: US)
  Receive Date: 20210614
  Receipt Date: 20210614
  Transmission Date: 20210717
  Serious: No
  Sender: FDA-Public Use
  Company Number: US-AMGEN-USASP2021090463

PATIENT
  Age: 13 Year
  Sex: Male
  Weight: 105 kg

DRUGS (8)
  1. NPLATE [Suspect]
     Active Substance: ROMIPLOSTIM
     Indication: IMMUNE THROMBOCYTOPENIA
     Dosage: 10 MICROGRAM/KILOGRAM, QWK
     Route: 065
     Dates: start: 20190710
  2. TRAZODONE [Concomitant]
     Active Substance: TRAZODONE HYDROCHLORIDE
  3. SERTRALINE [Concomitant]
     Active Substance: SERTRALINE HYDROCHLORIDE
  4. NPLATE [Suspect]
     Active Substance: ROMIPLOSTIM
     Dosage: 1000 MICROGRAM
     Route: 065
  5. RISPERIDONE. [Concomitant]
     Active Substance: RISPERIDONE
  6. CLOZAPINE. [Concomitant]
     Active Substance: CLOZAPINE
  7. ATOMOXETINE. [Concomitant]
     Active Substance: ATOMOXETINE HYDROCHLORIDE
  8. INSULIN [Concomitant]
     Active Substance: INSULIN NOS

REACTIONS (3)
  - Weight increased [Unknown]
  - Epistaxis [Unknown]
  - Platelet count decreased [Unknown]

NARRATIVE: CASE EVENT DATE: 2020
